FAERS Safety Report 8502845-5 (Version None)
Quarter: 2012Q3

REPORT INFORMATION
  Report Type: 
  Country: None (occurrence: None)
  Receive Date: 20120711
  Receipt Date: 20120702
  Transmission Date: 20120928
  Serious: Yes (Other)
  Sender: FDA-Public Use
  Company Number: ES-PFIZER INC-2012163925

PATIENT
  Age: 64 Year
  Sex: Female
  Weight: 56 kg

DRUGS (1)
  1. PANTOPRAZOLE [Suspect]
     Indication: GASTROOESOPHAGEAL REFLUX DISEASE
     Dosage: 40 MG, DAILY
     Route: 048
     Dates: start: 20120530, end: 20120616

REACTIONS (12)
  - GINGIVAL PAIN [None]
  - ORAL MUCOSAL ERYTHEMA [None]
  - OEDEMA MOUTH [None]
  - NECK PAIN [None]
  - FACIAL PAIN [None]
  - CHEST PAIN [None]
  - ODYNOPHAGIA [None]
  - HEADACHE [None]
  - SWELLING [None]
  - PAIN IN JAW [None]
  - OROPHARYNGEAL PAIN [None]
  - ORAL PAIN [None]
